FAERS Safety Report 14619941 (Version 5)
Quarter: 2019Q3

REPORT INFORMATION
  Report Type: Report from Study
  Country: US (occurrence: US)
  Receive Date: 20180309
  Receipt Date: 20190827
  Transmission Date: 20191004
  Serious: Yes (Death, Life-Threatening, Hospitalization, Other)
  Sender: FDA-Public Use
  Company Number: US-BRISTOL-MYERS SQUIBB COMPANY-BMS-2018-019668

PATIENT
  Age: 72 Year
  Sex: Female
  Weight: 75.75 kg

DRUGS (2)
  1. NIVOLUMAB [Suspect]
     Active Substance: NIVOLUMAB
     Indication: VULVAL CANCER
     Dosage: 240 MILLIGRAM
     Route: 042
     Dates: start: 20180206, end: 20180206
  2. IPILIMUMAB [Suspect]
     Active Substance: IPILIMUMAB
     Indication: VULVAL CANCER
     Dosage: 76 MILLIGRAM ON DAY 1 (1 MG/KG)
     Route: 042
     Dates: start: 20180206, end: 20180206

REACTIONS (9)
  - Myocarditis [Fatal]
  - Hypotension [Recovered/Resolved]
  - Troponin I increased [Unknown]
  - Multiple organ dysfunction syndrome [Fatal]
  - Sepsis [Fatal]
  - Alanine aminotransferase increased [Unknown]
  - Aspartate aminotransferase increased [Unknown]
  - Influenza like illness [Unknown]
  - Blood creatine phosphokinase increased [Unknown]

NARRATIVE: CASE EVENT DATE: 20180221
